FAERS Safety Report 6822433-6 (Version None)
Quarter: 2010Q3

REPORT INFORMATION
  Report Type: 
  Country: None (occurrence: None)
  Receive Date: 20100707
  Receipt Date: 20100707
  Transmission Date: 20110219
  Serious: No
  Sender: FDA-Public Use
  Company Number: None

PATIENT
  Sex: Male
  Weight: 66.4 kg

DRUGS (1)
  1. STELARA [Suspect]
     Dosage: 90MG/1ML PFS EVERY 12 WKS 057
     Dates: start: 20090317, end: 20100330

REACTIONS (3)
  - CONDITION AGGRAVATED [None]
  - DRUG INEFFECTIVE [None]
  - PSORIASIS [None]
